FAERS Safety Report 25199612 (Version 2)
Quarter: 2025Q2

REPORT INFORMATION
  Report Type: Spontaneous
  Country: US (occurrence: US)
  Receive Date: 20250415
  Receipt Date: 20250521
  Transmission Date: 20250717
  Serious: No
  Sender: JOHNSON AND JOHNSON
  Company Number: US-JNJFOC-20250388937

PATIENT
  Age: 76 Year
  Sex: Male

DRUGS (3)
  1. TALVEY [Suspect]
     Active Substance: TALQUETAMAB-TGVS
     Indication: Plasma cell myeloma
     Route: 065
     Dates: start: 20250213
  2. AMLODIPINE [Concomitant]
     Active Substance: AMLODIPINE BESYLATE
     Indication: Blood pressure measurement
  3. VALACYCLOVIR [Concomitant]
     Active Substance: VALACYCLOVIR HYDROCHLORIDE
     Indication: Antiviral treatment

REACTIONS (11)
  - Gait disturbance [Unknown]
  - Skin discolouration [Unknown]
  - Onychomadesis [Unknown]
  - Ageusia [Unknown]
  - Rash [Unknown]
  - Tongue ulceration [Unknown]
  - Fatigue [Unknown]
  - Anosmia [Unknown]
  - Skin exfoliation [Unknown]
  - Alopecia [Unknown]
  - Dry mouth [Unknown]
